FAERS Safety Report 14814145 (Version 1)
Quarter: 2018Q2

REPORT INFORMATION
  Report Type: Report from Study
  Country: None (occurrence: FR)
  Receive Date: 20180426
  Receipt Date: 20180426
  Transmission Date: 20180711
  Serious: Yes (Hospitalization, Other)
  Sender: FDA-Public Use
  Company Number: FR-CONCORDIA PHARMACEUTICALS INC.-E2B_00011314

PATIENT
  Age: 69 Year
  Sex: Male
  Weight: 82 kg

DRUGS (7)
  1. TEMERIT [Concomitant]
     Active Substance: NEBIVOLOL
     Indication: HYPERTENSION
     Dosage: 1 DF, DAILY
     Route: 048
  2. LEVETIRACETAM. [Concomitant]
     Active Substance: LEVETIRACETAM
     Indication: EPILEPSY
     Dosage: 500 MG, 2X/DAY
     Route: 048
  3. SINTROM [Concomitant]
     Active Substance: ACENOCOUMAROL
     Indication: ATRIAL FIBRILLATION
     Dosage: 2 MG, DAILY
     Route: 048
  4. LORLATINIB [Suspect]
     Active Substance: LORLATINIB
     Indication: LUNG NEOPLASM MALIGNANT
     Dosage: 100 MG, DAILY
     Route: 048
     Dates: end: 20171127
  5. PREDNISOLONE. [Suspect]
     Active Substance: PREDNISOLONE
     Dosage: 60 MG, DAILY
     Route: 048
  6. EUPANTOL [Concomitant]
     Active Substance: PANTOPRAZOLE SODIUM
     Dosage: 1 DF, DAILY
     Route: 048
  7. FLECAINE LP [Concomitant]
     Active Substance: FLECAINIDE
     Indication: CARDIAC FIBRILLATION
     Dosage: 1 DF, DAILY
     Route: 048

REACTIONS (5)
  - Hallucination [Recovered/Resolved]
  - Aggression [Recovered/Resolved]
  - Dyspnoea [Unknown]
  - Confusional state [Recovered/Resolved]
  - Anxiety [Recovered/Resolved]
